FAERS Safety Report 7048053-9 (Version None)
Quarter: 2010Q4

REPORT INFORMATION
  Report Type: 
  Country: None (occurrence: None)
  Receive Date: 20101015
  Receipt Date: 20100806
  Transmission Date: 20110411
  Serious: Yes (Hospitalization, Disabling)
  Sender: FDA-Public Use
  Company Number: B0659683A

PATIENT
  Sex: Female

DRUGS (15)
  1. CLAMOXYL [Suspect]
     Indication: LISTERIA ENCEPHALITIS
     Dosage: 2G FOUR TIMES PER DAY
     Route: 048
     Dates: start: 20100511, end: 20100521
  2. ZYLORIC [Suspect]
     Indication: PRODUCT USED FOR UNKNOWN INDICATION
     Route: 048
     Dates: end: 20100518
  3. GENTAMICIN [Suspect]
     Indication: LISTERIA ENCEPHALITIS
     Dosage: 210MG TWICE PER DAY
     Route: 048
     Dates: start: 20100511, end: 20100513
  4. COLCHIMAX [Suspect]
     Indication: GOUT
     Route: 048
     Dates: end: 20100518
  5. ALDACTONE [Suspect]
     Indication: PRODUCT USED FOR UNKNOWN INDICATION
     Route: 048
     Dates: end: 20100518
  6. MICARDIS [Suspect]
     Indication: PRODUCT USED FOR UNKNOWN INDICATION
     Route: 048
     Dates: end: 20100518
  7. KALEORID [Suspect]
     Indication: PRODUCT USED FOR UNKNOWN INDICATION
     Route: 048
     Dates: end: 20100518
  8. PREVISCAN [Concomitant]
     Indication: PRODUCT USED FOR UNKNOWN INDICATION
     Route: 048
     Dates: end: 20100518
  9. TENORMIN [Concomitant]
     Indication: PRODUCT USED FOR UNKNOWN INDICATION
     Route: 048
     Dates: end: 20100518
  10. HEMIGOXINE [Concomitant]
     Indication: PRODUCT USED FOR UNKNOWN INDICATION
     Route: 048
  11. LASIX [Concomitant]
     Indication: PRODUCT USED FOR UNKNOWN INDICATION
     Route: 048
     Dates: end: 20100518
  12. CIFLOX [Concomitant]
     Indication: PYELONEPHRITIS
     Route: 065
     Dates: start: 20100508, end: 20100511
  13. ROCEPHIN [Concomitant]
     Indication: LISTERIA ENCEPHALITIS
     Route: 065
     Dates: start: 20100511, end: 20100511
  14. TRAMADOL HCL [Concomitant]
     Indication: PRODUCT USED FOR UNKNOWN INDICATION
     Route: 065
     Dates: start: 20100511, end: 20100513
  15. LEXOMIL [Concomitant]
     Indication: PRODUCT USED FOR UNKNOWN INDICATION
     Route: 065
     Dates: start: 20100513

REACTIONS (6)
  - CONDITION AGGRAVATED [None]
  - EOSINOPHIL COUNT INCREASED [None]
  - ERYTHEMA MULTIFORME [None]
  - OVERDOSE [None]
  - PROTEINURIA [None]
  - RENAL FAILURE ACUTE [None]
